FAERS Safety Report 4600079-8 (Version None)
Quarter: 2005Q1

REPORT INFORMATION
  Report Type: 
  Country: None (occurrence: None)
  Receive Date: 20050307
  Receipt Date: 20050222
  Transmission Date: 20050727
  Serious: Yes (Hospitalization)
  Sender: FDA-Public Use
  Company Number: US-BRISTOL-MYERS SQUIBB COMPANY-12871919

PATIENT
  Age: 61 Year
  Sex: Female
  Weight: 70 kg

DRUGS (11)
  1. CARBOPLATIN [Suspect]
     Indication: BREAST CANCER
     Dosage: AUC = 6
     Route: 042
     Dates: start: 20041228, end: 20041228
  2. TAXOL [Suspect]
     Indication: BREAST CANCER
     Dosage: 175 MG/M2
     Route: 042
     Dates: start: 20041228, end: 20041228
  3. LOPID [Concomitant]
  4. NITROGLYCERIN [Concomitant]
  5. ISOSORBIDE DINITRATE [Concomitant]
  6. METOPROLOL [Concomitant]
  7. INDOCIN [Concomitant]
  8. DIPENTUM [Concomitant]
  9. HYDROCHLOROTHIAZIDE [Concomitant]
  10. ZOCOR [Concomitant]
  11. METFORMIN HCL [Concomitant]

REACTIONS (3)
  - AORTIC ANEURYSM [None]
  - RENAL FAILURE ACUTE [None]
  - SYNCOPE [None]
